FAERS Safety Report 7234747-9 (Version None)
Quarter: 2011Q1

REPORT INFORMATION
  Report Type: 
  Country: None (occurrence: None)
  Receive Date: 20110120
  Receipt Date: 20090401
  Transmission Date: 20110831
  Serious: No
  Sender: FDA-Public Use
  Company Number: 2009BI010242

PATIENT
  Sex: Female

DRUGS (1)
  1. TYSABRI [Suspect]
     Indication: MULTIPLE SCLEROSIS
     Route: 042
     Dates: start: 20090227

REACTIONS (8)
  - FATIGUE [None]
  - MOOD SWINGS [None]
  - COGNITIVE DISORDER [None]
  - HEADACHE [None]
  - MOOD ALTERED [None]
  - HEMIPARESIS [None]
  - HYPOAESTHESIA [None]
  - LACERATION [None]
